FAERS Safety Report 4425142-6 (Version None)
Quarter: 2004Q3

REPORT INFORMATION
  Report Type: 
  Country: None (occurrence: None)
  Receive Date: 20040813
  Receipt Date: 20040804
  Transmission Date: 20050211
  Serious: Yes (Other)
  Sender: FDA-Public Use
  Company Number: GB-JNJFOC-20040801529

PATIENT
  Age: 30 Year
  Sex: Male

DRUGS (4)
  1. RISPERDAL [Interacting]
     Indication: DRUG USE FOR UNKNOWN INDICATION
     Route: 049
  2. CLOZARIL [Suspect]
     Indication: SCHIZOPHRENIA
     Route: 049
  3. TRAZODONE [Concomitant]
     Route: 065
  4. PROCYCLIDINE HYDROCHLORIDE 2MG TAB [Concomitant]
     Route: 065

REACTIONS (3)
  - DRUG INTERACTION [None]
  - STRESS SYMPTOMS [None]
  - TACHYCARDIA [None]
